FAERS Safety Report 9419190 (Version 1)
Quarter: 2013Q3

REPORT INFORMATION
  Report Type: Spontaneous
  Country: GB (occurrence: None)
  Receive Date: 20130723
  Receipt Date: 20130723
  Transmission Date: 20140515
  Serious: Yes (Hospitalization)
  Sender: FDA-Public Use
  Company Number: AUR-APL-2013-05992

PATIENT
  Age: 62 Year
  Sex: Female

DRUGS (3)
  1. ALENDRONIC ACID (ALENDRONIC ACID) [Suspect]
     Indication: OSTEOPOROSIS
     Route: 048
  2. HYDROCARBAMIDE (HYDROCARBAMIDE) [Concomitant]
  3. ASPIRING  (ACETYLSALICYLIC ACID) [Concomitant]

REACTIONS (5)
  - Osteonecrosis [None]
  - Pain in jaw [None]
  - Mastication disorder [None]
  - Odynophagia [None]
  - Transient ischaemic attack [None]
